FAERS Safety Report 7265375-7 (Version None)
Quarter: 2011Q1

REPORT INFORMATION
  Report Type: 
  Country: None (occurrence: None)
  Receive Date: 20110131
  Receipt Date: 20110124
  Transmission Date: 20110831
  Serious: Yes (Hospitalization)
  Sender: FDA-Public Use
  Company Number: ES-ROCHE-731753

PATIENT
  Sex: Male
  Weight: 62 kg

DRUGS (4)
  1. NAPROXEN [Concomitant]
     Dates: start: 20030301
  2. TOCILIZUMAB [Suspect]
     Indication: RHEUMATOID ARTHRITIS
     Dosage: FORM: SOLUTION, DATE OF LAST DOSE PRIOR TO SAE: 11 MAY 2010.
     Route: 042
     Dates: start: 20050614
  3. PREDNISONE [Concomitant]
     Dates: start: 20080717
  4. RABEPRAZOLE SODIUM [Concomitant]
     Dates: start: 20090501

REACTIONS (1)
  - LUNG ADENOCARCINOMA [None]
